FAERS Safety Report 24570099 (Version 1)
Quarter: 2024Q4

REPORT INFORMATION
  Report Type: Spontaneous
  Country: NO (occurrence: NO)
  Receive Date: 20241031
  Receipt Date: 20241031
  Transmission Date: 20250115
  Serious: Yes (Disabling)
  Sender: TEVA
  Company Number: NO-TEVA-VS-3258480

PATIENT
  Age: 22 Year
  Sex: Male

DRUGS (1)
  1. TETRACYCLINE [Suspect]
     Active Substance: TETRACYCLINE
     Indication: Acne
     Route: 065
     Dates: start: 20210331

REACTIONS (6)
  - Colitis ulcerative [Unknown]
  - Impaired work ability [Unknown]
  - Faecal calprotectin increased [Unknown]
  - Abdominal pain upper [Unknown]
  - Diarrhoea [Unknown]
  - Gastrointestinal inflammation [Unknown]

NARRATIVE: CASE EVENT DATE: 20240520
